FAERS Safety Report 16718690 (Version 1)
Quarter: 2019Q3

REPORT INFORMATION
  Report Type: Spontaneous
  Country: AT (occurrence: AT)
  Receive Date: 20190820
  Receipt Date: 20190820
  Transmission Date: 20191005
  Serious: Yes (Other)
  Sender: FDA-Public Use
  Company Number: AT-B.I. PHARMACEUTICALS,INC./RIDGEFIELD-2019-BI-033328

PATIENT

DRUGS (2)
  1. GILOTRIF [Suspect]
     Active Substance: AFATINIB
     Indication: METASTASIS
     Route: 065
     Dates: start: 20190628, end: 20190808
  2. GILOTRIF [Suspect]
     Active Substance: AFATINIB
     Indication: BLADDER CANCER

REACTIONS (3)
  - Metastases to liver [Unknown]
  - Diarrhoea [Unknown]
  - Off label use [Unknown]
